FAERS Safety Report 7329818-2 (Version None)
Quarter: 2011Q1

REPORT INFORMATION
  Report Type: 
  Country: None (occurrence: None)
  Receive Date: 20110303
  Receipt Date: 20110207
  Transmission Date: 20110831
  Serious: No
  Sender: FDA-Public Use
  Company Number: US-B.I. PHARMACEUTICALS,INC./RIDGEFIELD-2011-BP-04501BP

PATIENT
  Age: 64 Year
  Sex: Female

DRUGS (10)
  1. PROPRANOLOL [Concomitant]
  2. DILTIAZEM [Concomitant]
  3. PRADAXA [Suspect]
     Indication: ATRIAL FIBRILLATION
     Dosage: 300 MG
     Route: 048
     Dates: start: 20110101
  4. PRADAXA [Suspect]
     Indication: CEREBROVASCULAR ACCIDENT PROPHYLAXIS
  5. CITALOPRAM [Concomitant]
  6. SYNTHROID [Concomitant]
  7. ATIVAN [Concomitant]
  8. TUMS [Concomitant]
  9. PRILOSEC [Concomitant]
  10. PROPAFENONE [Concomitant]

REACTIONS (1)
  - SPIDER VEIN [None]
